FAERS Safety Report 7740022-6 (Version None)
Quarter: 2011Q3

REPORT INFORMATION
  Report Type: 
  Country: None (occurrence: None)
  Receive Date: 20110909
  Receipt Date: 20110831
  Transmission Date: 20111222
  Serious: Yes (Hospitalization)
  Sender: FDA-Public Use
  Company Number: US-JNJFOC-20110901750

PATIENT
  Sex: Female
  Weight: 41.28 kg

DRUGS (5)
  1. PRILOSEC [Concomitant]
  2. NORETHINDRONE [Concomitant]
  3. REMICADE [Suspect]
     Indication: COLITIS ULCERATIVE
     Route: 042
     Dates: start: 20110720
  4. REMICADE [Suspect]
     Route: 042
     Dates: start: 20110830
  5. PREDNISONE [Concomitant]

REACTIONS (1)
  - COLITIS ULCERATIVE [None]
